FAERS Safety Report 19362492 (Version 2)
Quarter: 2021Q2

REPORT INFORMATION
  Report Type: Report from Study
  Country: US (occurrence: US)
  Receive Date: 20210603
  Receipt Date: 20210622
  Transmission Date: 20210717
  Serious: Yes (Other)
  Sender: FDA-Public Use
  Company Number: US-BEH-2021132365

PATIENT
  Age: 57 Year
  Sex: Male
  Weight: 131.07 kg

DRUGS (3)
  1. TYLENOL 8HR [Concomitant]
     Active Substance: ACETAMINOPHEN
     Indication: PREMEDICATION
     Route: 065
  2. HIZENTRA [Suspect]
     Active Substance: HUMAN IMMUNOGLOBULIN G
     Indication: PRIMARY IMMUNODEFICIENCY SYNDROME
     Dosage: 20 GRAM, QW
     Route: 058
     Dates: start: 20210326
  3. BENADRYL 24 D [Concomitant]
     Active Substance: LORATADINE\PSEUDOEPHEDRINE SULFATE
     Indication: PREMEDICATION
     Route: 065

REACTIONS (12)
  - Nausea [Recovered/Resolved]
  - Pain [Recovered/Resolved]
  - Infusion site bruising [Recovered/Resolved]
  - Infusion site extravasation [Recovered/Resolved]
  - Chills [Recovered/Resolved]
  - Infusion site mass [Recovered/Resolved]
  - Surgery [Recovered/Resolved]
  - Vomiting [Recovered/Resolved]
  - Pyrexia [Recovered/Resolved]
  - Fatigue [Recovered/Resolved]
  - Fatigue [Unknown]
  - Headache [Unknown]

NARRATIVE: CASE EVENT DATE: 20210326
